FAERS Safety Report 21029170 (Version 1)
Quarter: 2022Q2

REPORT INFORMATION
  Report Type: Spontaneous
  Country: DK (occurrence: DK)
  Receive Date: 20220630
  Receipt Date: 20220630
  Transmission Date: 20220721
  Serious: Yes (Hospitalization, Other)
  Sender: FDA-Public Use
  Company Number: None

PATIENT
  Age: 47 Year
  Sex: Male

DRUGS (6)
  1. ALUNBRIG [Suspect]
     Active Substance: BRIGATINIB
     Indication: Lung neoplasm malignant
     Dosage: 90 MILLIGRAM, QD
     Route: 048
     Dates: start: 20220525, end: 20220531
  2. NIZORAL [Concomitant]
     Active Substance: KETOCONAZOLE
     Indication: Dandruff
     Dosage: UNK
     Route: 065
     Dates: start: 20220523
  3. PREGABALIN ^ACCORD^ [Concomitant]
     Indication: Pain
     Dosage: UNK
     Route: 065
     Dates: start: 20210521
  4. FUROSEMIDE [Concomitant]
     Active Substance: FUROSEMIDE
     Indication: Diuretic therapy
     Dosage: UNK
     Route: 065
     Dates: start: 20210821
  5. KALIUMKLORID ^ORIFARM^ [Concomitant]
     Indication: Mineral supplementation
     Dosage: UNK
     Route: 065
     Dates: start: 20220606
  6. MORPHINE SULFATE [Concomitant]
     Active Substance: MORPHINE SULFATE
     Indication: Pain
     Dosage: UNK
     Route: 065
     Dates: start: 20210822, end: 202206

REACTIONS (2)
  - Arthritis reactive [Not Recovered/Not Resolved]
  - Haemolytic anaemia [Recovering/Resolving]

NARRATIVE: CASE EVENT DATE: 20220601
